FAERS Safety Report 7922787-3 (Version None)
Quarter: 2011Q4

REPORT INFORMATION
  Report Type: 
  Country: None (occurrence: None)
  Receive Date: 20111117
  Receipt Date: 20110125
  Transmission Date: 20120403
  Serious: No
  Sender: FDA-Public Use
  Company Number: US-AMGEN-USASP2011004492

PATIENT
  Age: 57 Year
  Sex: Female

DRUGS (2)
  1. ENBREL [Suspect]
     Indication: PSORIASIS
  2. ENBREL [Suspect]
     Indication: PSORIATIC ARTHROPATHY
     Dosage: 50 MG, 2 TIMES/WK
     Dates: start: 20081001

REACTIONS (6)
  - INFECTION [None]
  - PSORIASIS [None]
  - FUNCTIONAL GASTROINTESTINAL DISORDER [None]
  - INJECTION SITE ABSCESS [None]
  - ONYCHOMADESIS [None]
  - NAIL DISORDER [None]
